FAERS Safety Report 4879685-1 (Version None)
Quarter: 2006Q1

REPORT INFORMATION
  Report Type: 
  Country: None (occurrence: None)
  Receive Date: 20060113
  Receipt Date: 20060102
  Transmission Date: 20060701
  Serious: Yes (Hospitalization, Other)
  Sender: FDA-Public Use
  Company Number: PHBS2006US00462

PATIENT
  Age: 40 Year
  Sex: Male

DRUGS (2)
  1. CYCLOSPORINE [Suspect]
     Indication: RENAL TRANSPLANT
  2. STEROIDS NOS [Concomitant]

REACTIONS (6)
  - ABDOMINAL HERNIA REPAIR [None]
  - ANURIA [None]
  - RENAL FAILURE ACUTE [None]
  - SEPSIS [None]
  - TRANSPLANT REJECTION [None]
  - WOUND DEHISCENCE [None]
